FAERS Safety Report 5948909-1 (Version None)
Quarter: 2008Q4

REPORT INFORMATION
  Report Type: 
  Country: None (occurrence: None)
  Receive Date: 20081111
  Receipt Date: 20081104
  Transmission Date: 20090506
  Serious: Yes (Other)
  Sender: FDA-Public Use
  Company Number: US-ASTRAZENECA-2008UW13044

PATIENT
  Sex: Female

DRUGS (1)
  1. CRESTOR [Suspect]
     Route: 048
     Dates: start: 20071201, end: 20080201

REACTIONS (3)
  - MUSCULAR WEAKNESS [None]
  - MYALGIA [None]
  - ROTATOR CUFF SYNDROME [None]
